FAERS Safety Report 17917056 (Version 2)
Quarter: 2020Q3

REPORT INFORMATION
  Report Type: Spontaneous
  Country: US (occurrence: US)
  Receive Date: 20200619
  Receipt Date: 20200706
  Transmission Date: 20201103
  Serious: Yes (Hospitalization)
  Sender: FDA-Public Use
  Company Number: US-FRESENIUS MEDICAL CARE RENAL THERAPIES GROUP-FMC-2006-000666

PATIENT
  Age: 30 Year
  Sex: Female
  Weight: 118 kg

DRUGS (1)
  1. DELFLEX [Suspect]
     Active Substance: CALCIUM CHLORIDE\DEXTROSE\MAGNESIUM CHLORIDE\SODIUM CHLORIDE\SODIUM LACTATE
     Indication: END STAGE RENAL DISEASE
     Dosage: TIDAL, 1ST FILL 2,300 ML, TIDAL FILL 2,000 ML, TIDAL DRAIN 2,100 ML WITH A LAST FILL OF 500 ML
     Route: 033

REACTIONS (2)
  - Peritonitis [Unknown]
  - Pancreatitis [Unknown]
